FAERS Safety Report 18164790 (Version 1)
Quarter: 2020Q3

REPORT INFORMATION
  Report Type: Report from Study
  Country: None (occurrence: CH)
  Receive Date: 20200819
  Receipt Date: 20200819
  Transmission Date: 20201103
  Serious: Yes (Death, Hospitalization, Other)
  Sender: FDA-Public Use
  Company Number: CH-ABBVIE-20K-151-3527033-00

PATIENT
  Age: 63 Year
  Sex: Female

DRUGS (3)
  1. DUODOPA [Suspect]
     Active Substance: CARBIDOPA\LEVODOPA
     Indication: PRODUCT USED FOR UNKNOWN INDICATION
     Route: 050
     Dates: start: 20180524, end: 20191218
  2. DUODOPA [Suspect]
     Active Substance: CARBIDOPA\LEVODOPA
     Dosage: MD 0; CRD 4,6; ED: 1,5; 16H THERAPY
     Route: 050
     Dates: start: 20200626, end: 202008
  3. DUODOPA [Suspect]
     Active Substance: CARBIDOPA\LEVODOPA
     Dosage: MD: 10,5; CRD: 4,6; ED: 1,5; 16H THERAPY
     Route: 050
     Dates: start: 20191218, end: 20200626

REACTIONS (5)
  - Hospitalisation [Unknown]
  - Circulatory collapse [Not Recovered/Not Resolved]
  - Brain oedema [Fatal]
  - Flatulence [Unknown]
  - Metabolic disorder [Not Recovered/Not Resolved]

NARRATIVE: CASE EVENT DATE: 202008
